FAERS Safety Report 14843210 (Version 2)
Quarter: 2018Q2

REPORT INFORMATION
  Report Type: Spontaneous
  Country: US (occurrence: US)
  Receive Date: 20180503
  Receipt Date: 20180509
  Transmission Date: 20180711
  Serious: Yes (Hospitalization, Other)
  Sender: FDA-Public Use
  Company Number: US-PFIZER INC-2018180033

PATIENT
  Age: 53 Year
  Sex: Female

DRUGS (7)
  1. FENTANYL. [Concomitant]
     Active Substance: FENTANYL
     Dosage: UNK
  2. AROMASIN [Suspect]
     Active Substance: EXEMESTANE
     Dosage: UNK
  3. SYNTHROID [Interacting]
     Active Substance: LEVOTHYROXINE SODIUM
     Indication: HYPOTHYROIDISM
     Dosage: 88 UG, UNK (88 MCG, 1 IN 1 D)
     Route: 048
     Dates: start: 2001, end: 2002
  4. SYNTHROID [Interacting]
     Active Substance: LEVOTHYROXINE SODIUM
     Dosage: 125 UG, 1X/DAY (125 MCG, 1 IN 1 D)
     Route: 048
     Dates: start: 2002, end: 2010
  5. SYNTHROID [Interacting]
     Active Substance: LEVOTHYROXINE SODIUM
     Dosage: 88 UG, UNK (88 MCG, 1 IN 1 D)
     Route: 048
     Dates: start: 2010
  6. DEXAMETHASONE. [Interacting]
     Active Substance: DEXAMETHASONE
     Indication: BREAST CANCER
     Dosage: UNK
     Dates: start: 2011
  7. TAMOXIFEN [Concomitant]
     Active Substance: TAMOXIFEN
     Dosage: UNK

REACTIONS (6)
  - Gait inability [Recovered/Resolved]
  - Trigger finger [Recovered/Resolved]
  - Myopathy [Recovered/Resolved]
  - Drug interaction [Not Recovered/Not Resolved]
  - Blood cholesterol increased [Not Recovered/Not Resolved]
  - Hypertension [Not Recovered/Not Resolved]

NARRATIVE: CASE EVENT DATE: 2011
